FAERS Safety Report 12204428 (Version 1)
Quarter: 2016Q1

REPORT INFORMATION
  Report Type: Spontaneous
  Country: US (occurrence: None)
  Receive Date: 20160322
  Receipt Date: 20160322
  Transmission Date: 20160526
  Serious: No
  Sender: FDA-Public Use
  Company Number: None

PATIENT
  Age: 55 Year
  Sex: Male
  Weight: 86.18 kg

DRUGS (4)
  1. DAILY VITAMIN [Concomitant]
     Active Substance: VITAMINS
  2. FENTANYL TRANSDERMAL SYSTEM [Suspect]
     Active Substance: FENTANYL
     Indication: POST-TRAUMATIC PAIN
     Dosage: 1 PATCH EVERY 72 HOURS   1 PATCH EVERY 72HR  APPLIED TO A SURFACE, USUALLY THE SKIN
     Dates: start: 20160304, end: 20160321
  3. BACLOFEN. [Concomitant]
     Active Substance: BACLOFEN
  4. DIAZAPAN [Concomitant]

REACTIONS (6)
  - Product adhesion issue [None]
  - Drug withdrawal syndrome [None]
  - Device physical property issue [None]
  - Device difficult to use [None]
  - Drug effect decreased [None]
  - Product packaging issue [None]

NARRATIVE: CASE EVENT DATE: 20160304
